FAERS Safety Report 23351494 (Version 1)
Quarter: 2023Q4

REPORT INFORMATION
  Report Type: Spontaneous
  Country: US (occurrence: None)
  Receive Date: 20231229
  Receipt Date: 20231229
  Transmission Date: 20240109
  Serious: Yes (Death)
  Sender: FDA-Public Use
  Company Number: None

PATIENT
  Sex: Female

DRUGS (4)
  1. AMBRISENTAN [Suspect]
     Active Substance: AMBRISENTAN
     Indication: Pulmonary arterial hypertension
     Route: 048
     Dates: start: 20230517
  2. DEPO-MEDROL INJ [Concomitant]
  3. TADALAFIL TAB 20MG [Concomitant]
  4. TADALAFIL 20MG TAB [Concomitant]

REACTIONS (1)
  - Hospice care [None]
